FAERS Safety Report 7449758-8 (Version None)
Quarter: 2011Q2

REPORT INFORMATION
  Report Type: 
  Country: None (occurrence: None)
  Receive Date: 20110421
  Receipt Date: 20110414
  Transmission Date: 20111010
  Serious: Yes (Hospitalization)
  Sender: FDA-Public Use
  Company Number: UTC-005362

PATIENT
  Age: 81 Year
  Sex: Male
  Weight: 90.9 kg

DRUGS (4)
  1. REVATIO [Concomitant]
  2. DIURETICS (DIURETICS) [Concomitant]
  3. TYVASO [Suspect]
     Indication: PULMONARY HYPERTENSION
     Dosage: 216 MCG (54 MCG, 4 IN 1 D), INHALATION
     Route: 055
     Dates: start: 20100603
  4. OXYGEN (OXYGEN) [Concomitant]

REACTIONS (1)
  - BLOOD URINE PRESENT [None]
